FAERS Safety Report 5827568-2 (Version None)
Quarter: 2008Q3

REPORT INFORMATION
  Report Type: 
  Country: None (occurrence: None)
  Receive Date: 20080730
  Receipt Date: 20080723
  Transmission Date: 20090109
  Serious: Yes (Hospitalization)
  Sender: FDA-Public Use
  Company Number: US-BOEHRINGER INGELHEIM GMBH, GERMANY-2008-BP-11723RO

PATIENT
  Sex: Female

DRUGS (4)
  1. SODIUM POLYSTYRENE SULFONATE [Suspect]
     Indication: BLOOD POTASSIUM INCREASED
     Route: 048
     Dates: start: 20080407, end: 20080407
  2. SODIUM POLYSTYRENE SULFONATE [Suspect]
     Route: 048
     Dates: start: 20080414, end: 20080414
  3. SODIUM POLYSTYRENE SULFONATE [Suspect]
     Route: 048
     Dates: start: 20080519, end: 20080519
  4. IMMUNOSUPPRESSANTS [Concomitant]
     Indication: RENAL TRANSPLANT

REACTIONS (4)
  - BLOOD POTASSIUM INCREASED [None]
  - COMA [None]
  - INFECTION [None]
  - SEPSIS [None]
